FAERS Safety Report 13183986 (Version 1)
Quarter: 2017Q1

REPORT INFORMATION
  Report Type: Spontaneous
  Country: US (occurrence: US)
  Receive Date: 20170203
  Receipt Date: 20170203
  Transmission Date: 20170428
  Serious: Yes (Other)
  Sender: FDA-Public Use
  Company Number: US-AMGEN-USASP2017014801

PATIENT
  Sex: Male

DRUGS (1)
  1. NPLATE [Suspect]
     Active Substance: ROMIPLOSTIM
     Indication: PLASMA CELL MYELOMA
     Dosage: 10 UNIT, 3 TIMES/WK
     Route: 065

REACTIONS (4)
  - Off label use [Unknown]
  - Neoplasm [Unknown]
  - Neutropenia [Unknown]
  - Leukopenia [Unknown]
